FAERS Safety Report 8308562-9 (Version None)
Quarter: 2012Q2

REPORT INFORMATION
  Report Type: 
  Country: None (occurrence: None)
  Receive Date: 20120424
  Receipt Date: 20120411
  Transmission Date: 20120825
  Serious: Yes (Other)
  Sender: FDA-Public Use
  Company Number: US-ELI_LILLY_AND_COMPANY-US201204003754

PATIENT
  Sex: Male

DRUGS (5)
  1. LASIX [Concomitant]
  2. PROZAC [Suspect]
     Indication: DEPRESSION
     Dosage: UNK
     Dates: start: 19900101, end: 20120301
  3. PROZAC WEEKLY [Suspect]
     Indication: DEPRESSION
     Dosage: UNK
     Dates: start: 19900101, end: 20120301
  4. ANTIHYPERTENSIVES [Concomitant]
  5. DIGOXIN [Concomitant]

REACTIONS (3)
  - MULTIPLE SYSTEM ATROPHY [None]
  - FALL [None]
  - DYSSTASIA [None]
